FAERS Safety Report 8717582 (Version 5)
Quarter: 2013Q3

REPORT INFORMATION
  Report Type: Spontaneous
  Country: US (occurrence: US)
  Receive Date: 20120810
  Receipt Date: 20130926
  Transmission Date: 20140515
  Serious: Yes (Disabling, Other)
  Sender: FDA-Public Use
  Company Number: US-009507513-2012SP019311

PATIENT
  Sex: Female
  Weight: 56.69 kg

DRUGS (1)
  1. NUVARING [Suspect]
     Indication: CONTRACEPTION
     Dosage: UNK
     Dates: start: 200904, end: 201204

REACTIONS (10)
  - Abortion induced [Unknown]
  - Pulmonary embolism [Unknown]
  - Cerebrovascular accident [Unknown]
  - Deep vein thrombosis [Unknown]
  - Urticaria [Unknown]
  - Headache [Unknown]
  - Maternal exposure before pregnancy [Recovered/Resolved]
  - Myopia [Unknown]
  - Ligament sprain [Unknown]
  - Retained products of conception [Unknown]
